FAERS Safety Report 23689104 (Version 2)
Quarter: 2024Q2

REPORT INFORMATION
  Report Type: Report from Study
  Country: US (occurrence: US)
  Receive Date: 20240330
  Receipt Date: 20240604
  Transmission Date: 20240716
  Serious: Yes (Hospitalization, Disabling, Other)
  Sender: FDA-Public Use
  Company Number: US-ABBVIE-5506411

PATIENT
  Age: 74 Year
  Sex: Male
  Weight: 82 kg

DRUGS (5)
  1. HUMIRA [Suspect]
     Active Substance: ADALIMUMAB
     Indication: Osteoarthritis
     Dosage: FORM STRENGTH: 40 MILLIGRAM
     Route: 058
     Dates: start: 2004, end: 202209
  2. HUMIRA [Suspect]
     Active Substance: ADALIMUMAB
     Indication: Rheumatoid arthritis
     Dosage: FORM STRENGTH: 40 MILLIGRAM
     Route: 058
     Dates: start: 202306
  3. CEQUA [Concomitant]
     Active Substance: CYCLOSPORINE
     Indication: Dry eye
  4. PREDNISONE [Concomitant]
     Active Substance: PREDNISONE
     Indication: Osteoarthritis
  5. ATORVASTATIN [Concomitant]
     Active Substance: ATORVASTATIN
     Indication: Blood cholesterol increased

REACTIONS (11)
  - Cerebral haemorrhage [Unknown]
  - Visual field defect [Not Recovered/Not Resolved]
  - Pain in extremity [Recovering/Resolving]
  - Cerebrovascular accident [Unknown]
  - Lymph node pain [Recovered/Resolved]
  - Pain [Unknown]
  - Purulence [Recovered/Resolved]
  - Off label use [Not Recovered/Not Resolved]
  - Arthritis [Unknown]
  - Fibromyalgia [Unknown]
  - Optic neuropathy [Unknown]

NARRATIVE: CASE EVENT DATE: 20211101
